FAERS Safety Report 9639660 (Version 5)
Quarter: 2013Q4

REPORT INFORMATION
  Report Type: Report from Study
  Country: CA (occurrence: CA)
  Receive Date: 20131023
  Receipt Date: 20131211
  Transmission Date: 20140711
  Serious: Yes (Life-Threatening, Hospitalization, Other)
  Sender: FDA-Public Use
  Company Number: CA-ROCHE-1292270

PATIENT
  Age: 76 Year
  Sex: Female
  Weight: 45.4 kg

DRUGS (6)
  1. RITUXAN [Suspect]
     Indication: RHEUMATOID ARTHRITIS
     Dosage: DAY 1, DAY 15
     Route: 042
     Dates: start: 20121017
  2. RITUXAN [Suspect]
     Route: 042
     Dates: start: 20131021
  3. DIPHENHYDRAMINE HCL [Concomitant]
     Indication: PREMEDICATION
     Route: 048
     Dates: start: 20121017
  4. ACETAMINOPHEN [Concomitant]
     Indication: PREMEDICATION
     Route: 048
     Dates: start: 20121017
  5. METHYLPREDNISOLONE [Concomitant]
     Indication: PREMEDICATION
     Route: 042
     Dates: start: 20121017
  6. LEFLUNOMIDE [Concomitant]
     Route: 065

REACTIONS (6)
  - Cerebrovascular accident [Unknown]
  - Hyperkeratosis [Not Recovered/Not Resolved]
  - Injection site pain [Recovered/Resolved]
  - Injection site bruising [Not Recovered/Not Resolved]
  - Hypotension [Recovering/Resolving]
  - Muscle strain [Recovering/Resolving]
